FAERS Safety Report 9702910 (Version 1)
Quarter: 2013Q4

REPORT INFORMATION
  Report Type: Spontaneous
  Country: GR (occurrence: GR)
  Receive Date: 20131121
  Receipt Date: 20131121
  Transmission Date: 20140711
  Serious: Yes (Disabling, Other)
  Sender: FDA-Public Use
  Company Number: GR-UCBSA-103697

PATIENT
  Age: 72 Year
  Sex: Male

DRUGS (3)
  1. CIMZIA [Suspect]
     Indication: RHEUMATOID ARTHRITIS
     Route: 058
     Dates: start: 201205, end: 201309
  2. METHOTREXATE [Suspect]
     Indication: RHEUMATOID ARTHRITIS
     Dosage: 10-15MG ORALLY OR SUBCUTANEOUSLY, WEEKLY
     Dates: start: 201204, end: 201309
  3. NO CONCOMITANT MEDICATION [Concomitant]

REACTIONS (1)
  - Diffuse large B-cell lymphoma [Unknown]
